FAERS Safety Report 22754838 (Version 2)
Quarter: 2024Q1

REPORT INFORMATION
  Report Type: Spontaneous
  Country: GB (occurrence: None)
  Receive Date: 20230727
  Receipt Date: 20240202
  Transmission Date: 20240410
  Serious: Yes (Other)
  Sender: FDA-Public Use
  Company Number: 2021A907828

PATIENT
  Age: 36 Year
  Sex: Male
  Weight: 56.7 kg

DRUGS (3)
  1. ESOMEPRAZOLE [Suspect]
     Active Substance: ESOMEPRAZOLE
     Indication: Ill-defined disorder
     Dosage: 1 CAPSULE PER DAY
     Route: 048
     Dates: start: 20211223
  2. ESOMEPRAZOLE [Suspect]
     Active Substance: ESOMEPRAZOLE
     Indication: Ill-defined disorder
     Dosage: 1 CAPSULE PER DAY
     Route: 065
  3. APIXABAN [Concomitant]
     Active Substance: APIXABAN
     Indication: Ill-defined disorder

REACTIONS (2)
  - Adverse drug reaction [Unknown]
  - Mucosal disorder [Unknown]

NARRATIVE: CASE EVENT DATE: 20211224
